FAERS Safety Report 5428073-8 (Version None)
Quarter: 2007Q3

REPORT INFORMATION
  Report Type: 
  Country: None (occurrence: None)
  Receive Date: 20070731
  Receipt Date: 20070521
  Transmission Date: 20080115
  Serious: No
  Sender: FDA-Public Use
  Company Number: US200705005375

PATIENT
  Age: 81 Year
  Sex: Male

DRUGS (4)
  1. BYETTA [Suspect]
  2. EXENATIDE(EXENATIDE PEN) [Concomitant]
  3. AMARYL [Concomitant]
  4. VALSARTAN [Concomitant]

REACTIONS (1)
  - HERPES ZOSTER [None]
